FAERS Safety Report 7645393-7 (Version None)
Quarter: 2011Q3

REPORT INFORMATION
  Report Type: 
  Country: None (occurrence: None)
  Receive Date: 20110729
  Receipt Date: 20110728
  Transmission Date: 20111222
  Serious: Yes (Other)
  Sender: FDA-Public Use
  Company Number: SG-BAYER-2011-066104

PATIENT
  Age: 50 Year
  Sex: Male

DRUGS (1)
  1. GLUCOBAY [Suspect]

REACTIONS (1)
  - PRURITUS [None]
